FAERS Safety Report 10628446 (Version 1)
Quarter: 2014Q4

REPORT INFORMATION
  Report Type: Spontaneous
  Country: US (occurrence: US)
  Receive Date: 20141205
  Receipt Date: 20141205
  Transmission Date: 20150529
  Serious: No
  Sender: FDA-Public Use
  Company Number: US-BRISTOL-MYERS SQUIBB COMPANY-21191622

PATIENT
  Age: 85 Year
  Sex: Female
  Weight: 63.49 kg

DRUGS (3)
  1. COUMADIN [Suspect]
     Active Substance: WARFARIN SODIUM
     Indication: ATRIAL FIBRILLATION
     Dosage: 1DF: 1 OR 2 MG BUT WAS 3 MG TOWARDS THE END
  2. METOPROLOL [Concomitant]
     Active Substance: METOPROLOL
  3. COUMADIN [Suspect]
     Active Substance: WARFARIN SODIUM
     Indication: CARDIAC PACEMAKER INSERTION
     Dosage: 1DF: 1 OR 2 MG BUT WAS 3 MG TOWARDS THE END

REACTIONS (1)
  - Renal function test abnormal [Unknown]
